FAERS Safety Report 9375486 (Version 2)
Quarter: 2013Q3

REPORT INFORMATION
  Report Type: Report from Study
  Country: PR (occurrence: PR)
  Receive Date: 20130628
  Receipt Date: 20130722
  Transmission Date: 20140515
  Serious: Yes (Other)
  Sender: FDA-Public Use
  Company Number: PR-ABBOTT-13P-131-1107233-00

PATIENT
  Age: 39 Year
  Sex: Male
  Weight: 113.5 kg

DRUGS (10)
  1. HUMIRA [Suspect]
     Indication: RHEUMATOID ARTHRITIS
     Route: 058
     Dates: start: 20130119, end: 20130528
  2. METHOTREXATE [Concomitant]
     Indication: RHEUMATOID ARTHRITIS
     Route: 048
  3. FOLIC ACID [Concomitant]
     Indication: PRODUCT USED FOR UNKNOWN INDICATION
     Route: 048
  4. OMEPRAZOLE [Concomitant]
     Indication: GASTRIC DISORDER
     Route: 048
  5. ZANTAC [Concomitant]
     Indication: GASTRIC DISORDER
     Route: 048
  6. SYNTHROID [Concomitant]
     Indication: THYROID DISORDER
     Route: 048
  7. ATIVAN [Concomitant]
     Indication: ANXIETY
     Route: 048
  8. SINGULAIR [Concomitant]
     Indication: ASTHMA
     Route: 048
  9. ALBUTEROL [Concomitant]
     Indication: ASTHMA
     Route: 055
  10. SYMBICORT [Concomitant]
     Indication: ASTHMA
     Dosage: 2 PUPMPS AT BEDTIME
     Route: 055

REACTIONS (2)
  - Carpal tunnel syndrome [Not Recovered/Not Resolved]
  - Anxiety [Not Recovered/Not Resolved]
